FAERS Safety Report 24332709 (Version 6)
Quarter: 2025Q1

REPORT INFORMATION
  Report Type: Spontaneous
  Country: JP (occurrence: JP)
  Receive Date: 20240918
  Receipt Date: 20250120
  Transmission Date: 20250409
  Serious: Yes (Hospitalization)
  Sender: BOEHRINGER INGELHEIM
  Company Number: JP-NBI-2024-BI-036782

PATIENT
  Age: 77 Year
  Sex: Male

DRUGS (3)
  1. OFEV [Suspect]
     Active Substance: NINTEDANIB
     Indication: Interstitial lung disease
  2. OFEV [Suspect]
     Active Substance: NINTEDANIB
  3. CILOSTAZOL [Suspect]
     Active Substance: CILOSTAZOL
     Indication: Product used for unknown indication

REACTIONS (16)
  - Dyspnoea [Recovering/Resolving]
  - Pulmonary embolism [Recovering/Resolving]
  - Arrhythmia [Recovered/Resolved]
  - Diarrhoea [Recovered/Resolved]
  - Arterial insufficiency [Not Recovered/Not Resolved]
  - Lung disorder [Not Recovered/Not Resolved]
  - KL-6 increased [Recovering/Resolving]
  - Movement disorder [Not Recovered/Not Resolved]
  - Glomerular filtration rate decreased [Recovering/Resolving]
  - Arthralgia [Recovering/Resolving]
  - Rash [Recovered/Resolved]
  - Heart rate increased [Recovered/Resolved]
  - Oedema [Recovering/Resolving]
  - Pain in extremity [Not Recovered/Not Resolved]
  - Constipation [Recovered/Resolved]
  - Abdominal pain [Not Recovered/Not Resolved]

NARRATIVE: CASE EVENT DATE: 20240627
